FAERS Safety Report 5217933-9 (Version None)
Quarter: 2007Q1

REPORT INFORMATION
  Report Type: 
  Country: None (occurrence: None)
  Receive Date: 20061130
  Receipt Date: 20060807
  Transmission Date: 20070707
  Serious: Yes (Hospitalization)
  Sender: FDA-Public Use
  Company Number: US200607000807

PATIENT
  Sex: Male
  Weight: 59 kg

DRUGS (1)
  1. ZYPREXA [Suspect]
     Dates: start: 19960101, end: 19990815

REACTIONS (3)
  - DIABETES MELLITUS [None]
  - VISION BLURRED [None]
  - WEIGHT DECREASED [None]
